FAERS Safety Report 13141858 (Version 3)
Quarter: 2017Q3

REPORT INFORMATION
  Report Type: Report from Study
  Country: JP (occurrence: JP)
  Receive Date: 20170124
  Receipt Date: 20170712
  Transmission Date: 20171127
  Serious: Yes (Life-Threatening, Hospitalization, Disabling)
  Sender: FDA-Public Use
  Company Number: JP-IPSEN BIOPHARMACEUTICALS, INC.-2016-08140

PATIENT
  Age: 53 Year
  Sex: Female

DRUGS (4)
  1. SOMATULINE 90MG [Suspect]
     Active Substance: LANREOTIDE ACETATE
     Indication: ACROMEGALY
     Dosage: 90 MG
     Route: 058
     Dates: start: 20130708, end: 20131007
  2. AZILVA [Concomitant]
     Active Substance: AZILSARTAN KAMEDOXOMIL
     Indication: HYPERTENSION
     Route: 048
     Dates: start: 20140609
  3. SOMATULINE 90MG [Suspect]
     Active Substance: LANREOTIDE ACETATE
     Dosage: 120 MG
     Route: 058
     Dates: start: 20131111, end: 20160229
  4. LIVALO [Concomitant]
     Active Substance: PITAVASTATIN CALCIUM
     Indication: HYPERCHOLESTEROLAEMIA
     Route: 048
     Dates: start: 20070613

REACTIONS (8)
  - Hypertension [Recovering/Resolving]
  - Brain stem haemorrhage [Recovered/Resolved with Sequelae]
  - Inappropriate schedule of drug administration [Unknown]
  - Cholecystitis acute [Recovered/Resolved]
  - Hepatic function abnormal [Recovered/Resolved]
  - Cholelithiasis [Recovered/Resolved]
  - Ventricular extrasystoles [Recovered/Resolved]
  - Immune thrombocytopenic purpura [Recovering/Resolving]

NARRATIVE: CASE EVENT DATE: 20160104
